FAERS Safety Report 7997818-5 (Version None)
Quarter: 2011Q4

REPORT INFORMATION
  Report Type: 
  Country: None (occurrence: None)
  Receive Date: 20111221
  Receipt Date: 20111214
  Transmission Date: 20120403
  Serious: Yes (Hospitalization, Other)
  Sender: FDA-Public Use
  Company Number: AU-BRISTOL-MYERS SQUIBB COMPANY-15948862

PATIENT
  Age: 52 Year
  Sex: Male
  Weight: 71 kg

DRUGS (12)
  1. FOLIC ACID [Concomitant]
     Dosage: 5MG/6D/WK
  2. DURAGESIC-100 [Concomitant]
     Dosage: PATCHES
  3. AMOXICILLIN [Concomitant]
  4. NEXIUM [Concomitant]
  5. TARKA [Concomitant]
  6. PLAVIX [Concomitant]
  7. ACETAMINOPHEN W/ CODEINE [Concomitant]
     Route: 048
  8. PREDNISOLONE [Concomitant]
  9. VYTORIN [Concomitant]
  10. CALCIUM CARBONATE [Concomitant]
     Route: 048
  11. METHOTREXATE [Concomitant]
  12. ORENCIA [Suspect]
     Indication: RHEUMATOID ARTHRITIS
     Dosage: LAST INF ON 29JUL2011 INTERRUPTED ON 29APR08, 20AUG08
     Route: 042
     Dates: start: 20071115

REACTIONS (3)
  - DIARRHOEA [None]
  - JOINT SWELLING [None]
  - HERNIA [None]
